FAERS Safety Report 4954871-0 (Version None)
Quarter: 2006Q1

REPORT INFORMATION
  Report Type: 
  Country: None (occurrence: None)
  Receive Date: 20060327
  Receipt Date: 20060323
  Transmission Date: 20060701
  Serious: Yes (Other)
  Sender: FDA-Public Use
  Company Number: US-MERCK-0603USA03702

PATIENT
  Age: 53 Year
  Sex: Male
  Weight: 100 kg

DRUGS (10)
  1. ZETIA [Suspect]
     Indication: HYPERLIPIDAEMIA
     Route: 048
     Dates: start: 20041101, end: 20050901
  2. ACTOS [Concomitant]
     Indication: HYPERGLYCAEMIA
     Route: 065
     Dates: start: 20041101, end: 20050701
  3. ACTOS [Concomitant]
     Indication: HIGH DENSITY LIPOPROTEIN DECREASED
     Route: 065
     Dates: start: 20041101, end: 20050701
  4. DIOVAN HCT [Concomitant]
     Indication: HYPERTENSION
     Route: 048
     Dates: start: 20030101
  5. CRESTOR [Concomitant]
     Indication: HYPERLIPIDAEMIA
     Route: 048
     Dates: start: 20040901, end: 20050701
  6. SINGULAIR [Concomitant]
     Indication: HYPERSENSITIVITY
     Route: 048
     Dates: start: 20000101
  7. SINGULAIR [Concomitant]
     Indication: ASTHMA
     Route: 048
     Dates: start: 20000101
  8. METFORMIN [Concomitant]
     Route: 048
     Dates: start: 20030101, end: 20050701
  9. NIASPAN [Concomitant]
     Route: 065
  10. NIASPAN [Concomitant]
     Route: 065

REACTIONS (1)
  - LEUKOPENIA [None]
